FAERS Safety Report 14226505 (Version 1)
Quarter: 2017Q4

REPORT INFORMATION
  Report Type: Spontaneous
  Country: JP (occurrence: JP)
  Receive Date: 20171127
  Receipt Date: 20171127
  Transmission Date: 20180321
  Serious: Yes (Other)
  Sender: FDA-Public Use
  Company Number: JP-PFIZER INC-2017500581

PATIENT
  Sex: Female

DRUGS (1)
  1. RHEUMATREX [Suspect]
     Active Substance: METHOTREXATE SODIUM
     Indication: RHEUMATOID ARTHRITIS
     Dosage: 3 DF, WEEKLY(2 CAPSULES ON TUESDAY AND 1 CAPSULE ON WEDNESDAY)
     Route: 048

REACTIONS (5)
  - Stomatitis [Unknown]
  - White blood cell count decreased [Unknown]
  - Anaemia [Unknown]
  - Fracture [Unknown]
  - Platelet count decreased [Unknown]

NARRATIVE: CASE EVENT DATE: 201711
